FAERS Safety Report 17080141 (Version 1)
Quarter: 2019Q4

REPORT INFORMATION
  Report Type: Spontaneous
  Country: US (occurrence: US)
  Receive Date: 20191127
  Receipt Date: 20191127
  Transmission Date: 20200122
  Serious: No
  Sender: FDA-Public Use
  Company Number: US-ZYDUS-042812

PATIENT
  Age: 75 Year
  Sex: Male

DRUGS (1)
  1. VARDENAFIL/VARDENAFIL HYDROCHLORIDE [Suspect]
     Active Substance: VARDENAFIL HYDROCHLORIDE
     Indication: ERECTILE DYSFUNCTION
     Route: 048
     Dates: start: 201909, end: 201910

REACTIONS (3)
  - Penile haemorrhage [Recovered/Resolved]
  - Penile pain [Not Recovered/Not Resolved]
  - Penile erythema [Not Recovered/Not Resolved]

NARRATIVE: CASE EVENT DATE: 201909
